FAERS Safety Report 12860996 (Version 2)
Quarter: 2017Q4

REPORT INFORMATION
  Report Type: Spontaneous
  Country: US (occurrence: US)
  Receive Date: 20161019
  Receipt Date: 20171010
  Transmission Date: 20180320
  Serious: No
  Sender: FDA-Public Use
  Company Number: US-BAUSCH-BL-2016-012569

PATIENT
  Age: 22 Year
  Sex: Female
  Weight: 61.29 kg

DRUGS (1)
  1. METRONIDAZOLE. [Suspect]
     Active Substance: METRONIDAZOLE
     Indication: BACTERIAL VAGINOSIS
     Route: 067
     Dates: start: 20160523, end: 20160524

REACTIONS (5)
  - Vulvovaginal swelling [Recovered/Resolved]
  - Genital blister [Recovered/Resolved]
  - Drug ineffective [Unknown]
  - Purulence [Recovered/Resolved]
  - Pruritus [Recovered/Resolved]

NARRATIVE: CASE EVENT DATE: 201605
